FAERS Safety Report 17588776 (Version 1)
Quarter: 2020Q1

REPORT INFORMATION
  Report Type: Spontaneous
  Country: GB (occurrence: GB)
  Receive Date: 20200327
  Receipt Date: 20200327
  Transmission Date: 20200409
  Serious: Yes (Hospitalization, Other)
  Sender: FDA-Public Use
  Company Number: GB-AUROBINDO-AUR-APL-2020-015511

PATIENT
  Age: 47 Year
  Sex: Male
  Weight: 94 kg

DRUGS (1)
  1. NAPROXEN. [Suspect]
     Active Substance: NAPROXEN
     Indication: EPICONDYLITIS
     Dosage: 1000 MILLIGRAM, DAILY
     Route: 048
     Dates: start: 20200117

REACTIONS (1)
  - Melaena [Unknown]
